FAERS Safety Report 17651037 (Version 2)
Quarter: 2020Q2

REPORT INFORMATION
  Report Type: Report from Study
  Country: US (occurrence: US)
  Receive Date: 20200409
  Receipt Date: 20200601
  Transmission Date: 20200713
  Serious: No
  Sender: FDA-Public Use
  Company Number: NVSC2020US093785

PATIENT
  Sex: Female

DRUGS (2)
  1. BEOVU [Suspect]
     Active Substance: BROLUCIZUMAB-DBLL
     Indication: NEOVASCULAR AGE-RELATED MACULAR DEGENERATION
     Route: 047
  2. PREDNISONE. [Concomitant]
     Active Substance: PREDNISONE
     Indication: PRODUCT USED FOR UNKNOWN INDICATION
     Route: 065

REACTIONS (6)
  - Depressed mood [Unknown]
  - Drug ineffective [Unknown]
  - Visual impairment [Unknown]
  - Photopsia [Unknown]
  - Frustration tolerance decreased [Unknown]
  - Vitreous floaters [Unknown]
